FAERS Safety Report 5114471-9 (Version None)
Quarter: 2006Q3

REPORT INFORMATION
  Report Type: 
  Country: None (occurrence: None)
  Receive Date: 20060802
  Receipt Date: 20060615
  Transmission Date: 20061208
  Serious: Yes (Other)
  Sender: FDA-Public Use
  Company Number: 200611786US

PATIENT
  Age: 45 Year
  Sex: Female

DRUGS (3)
  1. KETEK [Suspect]
     Indication: UPPER RESPIRATORY TRACT INFECTION
     Dosage: QD PO
     Route: 048
     Dates: start: 20060126, end: 20060130
  2. MESTINON [Concomitant]
  3. SYNTHROID [Concomitant]

REACTIONS (4)
  - ASTHENIA [None]
  - DIPLOPIA [None]
  - EXTRAOCULAR MUSCLE PARESIS [None]
  - MYASTHENIA GRAVIS [None]
